FAERS Safety Report 14882496 (Version 8)
Quarter: 2019Q1

REPORT INFORMATION
  Report Type: Spontaneous
  Country: CA (occurrence: CA)
  Receive Date: 20180511
  Receipt Date: 20190129
  Transmission Date: 20190417
  Serious: Yes (Hospitalization, Other)
  Sender: FDA-Public Use
  Company Number: CA-CELLTRION INC.-2018CA019162

PATIENT

DRUGS (22)
  1. INFLECTRA [Suspect]
     Active Substance: INFLIXIMAB-DYYB
     Dosage: 500 MG, CYCLIC (EVERY 0, 2, 6 WEEKS, THEN EVERY 8 WEEKS)
     Route: 042
     Dates: start: 20180403
  2. INFLECTRA [Suspect]
     Active Substance: INFLIXIMAB-DYYB
     Dosage: 500 MG, CYCLIC (EVERY 0, 2, 6 WEEKS, THEN EVERY 8 WEEKS)
     Route: 042
     Dates: start: 20180625
  3. INFLECTRA [Suspect]
     Active Substance: INFLIXIMAB-DYYB
     Dosage: 500 MG, CYCLIC (EVERY 0, 2, 6 WEEKS, THEN EVERY 8 WEEKS)
     Route: 042
     Dates: start: 20191031
  4. VITAMIN D [Concomitant]
     Active Substance: CHOLECALCIFEROL
     Dosage: 1000 IU
  5. VITALUX                            /00322001/ [Concomitant]
     Dosage: 2 DF (DOSAGE FORM), ONCE A DAY (1X/DAY) AT LUNCH
  6. MELATONIN [Concomitant]
     Active Substance: MELATONIN
     Dosage: 10 MG
  7. CALCIUM [Concomitant]
     Active Substance: CALCIUM
     Dosage: 500 MG
  8. ONDANSETRON [Concomitant]
     Active Substance: ONDANSETRON
     Dosage: 4 MG
  9. INFLECTRA [Suspect]
     Active Substance: INFLIXIMAB-DYYB
     Dosage: 500 MG, CYCLIC (EVERY 0, 2, 6 WEEKS, THEN EVERY 8 WEEKS
     Route: 042
     Dates: start: 20180403
  10. COVERSYL [Concomitant]
     Active Substance: PERINDOPRIL
     Dosage: 8 MG
  11. ONDISSOLVE [Concomitant]
     Dosage: 4 MG
  12. PROBIOTICS [Concomitant]
     Active Substance: PROBIOTICS NOS
     Dosage: 1 DF, 1X/DAY (IN MORNING) ONGOING
  13. INFLECTRA [Suspect]
     Active Substance: INFLIXIMAB-DYYB
     Dosage: 500 MG, CYCLIC (EVERY 0, 2, 6 WEEKS, THEN EVERY 8 WEEKS)
     Route: 042
     Dates: start: 20180501
  14. ASACOL [Concomitant]
     Active Substance: MESALAMINE
     Dosage: 800 MG
  15. ENTYVIO [Concomitant]
     Active Substance: VEDOLIZUMAB
     Dosage: UNK
  16. ASA [Concomitant]
     Active Substance: ASPIRIN
     Dosage: 81 MG
  17. TYLENOL EXTRA STRENGTH [Concomitant]
     Active Substance: ACETAMINOPHEN
     Dosage: 500 MG
  18. VANCOMYCIN [Concomitant]
     Active Substance: VANCOMYCIN
     Dosage: UNK
     Dates: start: 201808
  19. INFLECTRA [Suspect]
     Active Substance: INFLIXIMAB-DYYB
     Indication: COLITIS ULCERATIVE
     Dosage: 500 MG, CYCLIC (EVERY 0, 2, 6 WEEKS, THEN EVERY 8 WEEKS)
     Route: 042
     Dates: start: 20180319
  20. INFLECTRA [Suspect]
     Active Substance: INFLIXIMAB-DYYB
     Dosage: 500 MG, CYCLIC (EVERY 0, 2, 6 WEEKS, THEN EVERY 8 WEEKS)
     Route: 042
     Dates: start: 20181231, end: 20181231
  21. PREDNISONE. [Concomitant]
     Active Substance: PREDNISONE
     Dosage: UNK
  22. SYMBICORT [Concomitant]
     Active Substance: BUDESONIDE\FORMOTEROL FUMARATE DIHYDRATE
     Dosage: UNK

REACTIONS (26)
  - White blood cell count increased [Unknown]
  - Heart rate irregular [Unknown]
  - Diarrhoea [Unknown]
  - Haematochezia [Not Recovered/Not Resolved]
  - Blood pressure systolic increased [Unknown]
  - Muscle spasms [Not Recovered/Not Resolved]
  - C-reactive protein increased [Unknown]
  - Neutrophil count increased [Unknown]
  - Drug level below therapeutic [Unknown]
  - Clostridium difficile infection [Not Recovered/Not Resolved]
  - Chest pain [Recovering/Resolving]
  - White blood cell count increased [Unknown]
  - Nausea [Unknown]
  - Hyperchlorhydria [Unknown]
  - Syncope [Unknown]
  - Dizziness [Recovered/Resolved]
  - Arthralgia [Unknown]
  - Oxygen saturation abnormal [Unknown]
  - Chest discomfort [Recovering/Resolving]
  - Platelet count increased [Unknown]
  - Blood pressure fluctuation [Unknown]
  - Back pain [Recovering/Resolving]
  - Intervertebral disc compression [Unknown]
  - Blood potassium increased [Unknown]
  - Musculoskeletal stiffness [Unknown]
  - Mucous stools [Not Recovered/Not Resolved]

NARRATIVE: CASE EVENT DATE: 20180319
